FAERS Safety Report 17258458 (Version 4)
Quarter: 2020Q1

REPORT INFORMATION
  Report Type: Report from Study
  Country: US (occurrence: US)
  Receive Date: 20200110
  Receipt Date: 20200204
  Transmission Date: 20200409
  Serious: Yes (Life-Threatening, Hospitalization, Other)
  Sender: FDA-Public Use
  Company Number: US-BRISTOL-MYERS SQUIBB COMPANY-BMS-2019-126172

PATIENT
  Age: 56 Year
  Sex: Female

DRUGS (6)
  1. NIVOLUMAB [Suspect]
     Active Substance: NIVOLUMAB
     Indication: ENDOMETRIAL STROMAL SARCOMA
     Dosage: 183 MILLIGRAM, Q3WK
     Route: 042
  2. STOOL SOFTENER (DOCUSATE) [Concomitant]
     Active Substance: DOCUSATE
     Indication: PRODUCT USED FOR UNKNOWN INDICATION
     Dosage: 100 MILLIGRAM, QD (4 TABS A DAY)
     Route: 065
  3. ACETAMINOPHEN;HYDROCODONE [Concomitant]
     Active Substance: ACETAMINOPHEN\HYDROCODONE
     Indication: PAIN
     Dosage: 5-325 MG TABLET (TAKE 1 TAB BY MOUTH EVERY 4 HOURS AS NEEDED)
     Route: 048
  4. ROBITUSSIN AC [CODEINE PHOSPHATE;GUAIFENESIN] [Concomitant]
     Indication: PRODUCT USED FOR UNKNOWN INDICATION
     Dosage: TAKE 10 ML BY MOUTH 4 TIMES A DAY AS NEEDED
     Route: 048
  5. IPILIMUMAB [Suspect]
     Active Substance: IPILIMUMAB
     Indication: ENDOMETRIAL STROMAL SARCOMA
     Dosage: 61 MILLIGRAM, Q3WK
     Route: 042
     Dates: start: 20191120
  6. ELIQUIS [Suspect]
     Active Substance: APIXABAN
     Indication: PULMONARY EMBOLISM
     Dosage: 2.5 MILLIGRAM, BID
     Route: 048
     Dates: start: 20191223

REACTIONS (2)
  - Pulmonary haemorrhage [Not Recovered/Not Resolved]
  - Acute respiratory failure [Recovered/Resolved]

NARRATIVE: CASE EVENT DATE: 20200103
